FAERS Safety Report 19404806 (Version 2)
Quarter: 2021Q3

REPORT INFORMATION
  Report Type: Spontaneous
  Country: GB (occurrence: GB)
  Receive Date: 20210611
  Receipt Date: 20210701
  Transmission Date: 20211014
  Serious: Yes (Other)
  Sender: FDA-Public Use
  Company Number: GB-PFIZER INC-2021548473

PATIENT
  Sex: Female
  Weight: 53.97 kg

DRUGS (2)
  1. NIFEDIPRESS [Concomitant]
     Active Substance: NIFEDIPINE
     Indication: HYPERTENSION
     Dosage: UNK
  2. TOZINAMERAN. [Suspect]
     Active Substance: TOZINAMERAN
     Indication: COVID-19 IMMUNISATION
     Dosage: DOSE NUMBER UNKNOWN, SINGLE
     Dates: start: 20210502, end: 20210502

REACTIONS (2)
  - Herpes zoster [Unknown]
  - Papule [Recovering/Resolving]

NARRATIVE: CASE EVENT DATE: 2021
